FAERS Safety Report 25428054 (Version 1)
Quarter: 2025Q2

REPORT INFORMATION
  Report Type: Spontaneous
  Country: US (occurrence: None)
  Receive Date: 20250612
  Receipt Date: 20250612
  Transmission Date: 20250717
  Serious: Yes (unspecified)
  Sender: FDA-CTU
  Company Number: None

PATIENT
  Age: 15 Year
  Sex: Male
  Weight: 73.4 kg

DRUGS (1)
  1. VYKAT XR [Suspect]
     Active Substance: DIAZOXIDE CHOLINE
     Dosage: FREQUENCY : DAILY;?
     Route: 048

REACTIONS (5)
  - Drug ineffective [None]
  - Restlessness [None]
  - Patient elopement [None]
  - Middle insomnia [None]
  - Irritability [None]

NARRATIVE: CASE EVENT DATE: 20250606
